FAERS Safety Report 20604147 (Version 1)
Quarter: 2022Q1

REPORT INFORMATION
  Report Type: Spontaneous
  Country: US (occurrence: None)
  Receive Date: 20220316
  Receipt Date: 20220316
  Transmission Date: 20220424
  Serious: No
  Sender: FDA-Public Use
  Company Number: None

PATIENT
  Sex: Male

DRUGS (1)
  1. IMATINIB MESYLATE [Suspect]
     Active Substance: IMATINIB MESYLATE
     Indication: Chronic myeloid leukaemia
     Dosage: 400MG DAILY BY MOUTH
     Route: 048
     Dates: start: 202202

REACTIONS (4)
  - Flatulence [None]
  - Diarrhoea [None]
  - Abdominal discomfort [None]
  - Product quality issue [None]
